FAERS Safety Report 8854839 (Version 1)
Quarter: 2012Q4

REPORT INFORMATION
  Report Type: 
  Country: AU (occurrence: AU)
  Receive Date: 20121023
  Receipt Date: 20121023
  Transmission Date: 20130627
  Serious: Yes (Other)
  Sender: FDA-Public Use
  Company Number: PHHY2012AU093691

PATIENT
  Sex: Female

DRUGS (4)
  1. TEGRETOL [Suspect]
  2. VIMPAT [Suspect]
  3. AUGMENTIN [Concomitant]
  4. FRISIUM [Concomitant]

REACTIONS (3)
  - Petit mal epilepsy [Unknown]
  - Dizziness [Unknown]
  - Drug ineffective [Unknown]
